FAERS Safety Report 12474311 (Version 1)
Quarter: 2016Q2

REPORT INFORMATION
  Report Type: Spontaneous
  Country: US (occurrence: None)
  Receive Date: 20160616
  Receipt Date: 20160616
  Transmission Date: 20160815
  Serious: Yes (Hospitalization)
  Sender: FDA-Public Use
  Company Number: None

PATIENT
  Age: 85 Year
  Sex: Male

DRUGS (6)
  1. ZYTIGA [Suspect]
     Active Substance: ABIRATERONE ACETATE
     Indication: PROSTATE CANCER
     Route: 048
     Dates: start: 20150617
  2. OXYCODOEN [Concomitant]
  3. CALCIUM [Concomitant]
     Active Substance: CALCIUM
  4. MORPHINE [Concomitant]
     Active Substance: MORPHINE
  5. WARFARIN [Concomitant]
     Active Substance: WARFARIN
  6. ASPIRIN. [Concomitant]
     Active Substance: ASPIRIN

REACTIONS (2)
  - Urinary tract disorder [None]
  - Drug dose omission [None]

NARRATIVE: CASE EVENT DATE: 20160611
